FAERS Safety Report 23970296 (Version 1)
Quarter: 2024Q2

REPORT INFORMATION
  Report Type: Spontaneous
  Country: ES (occurrence: ES)
  Receive Date: 20240613
  Receipt Date: 20240613
  Transmission Date: 20240716
  Serious: Yes (Death)
  Sender: FDA-Public Use
  Company Number: ES-RECORDATI RARE DISEASE INC.-2024004334

PATIENT

DRUGS (7)
  1. PASIREOTIDE [Suspect]
     Active Substance: PASIREOTIDE
     Indication: Acromegaly
     Dosage: 60 MILLIGRAM, EVERY 28 DAYS
     Route: 030
     Dates: start: 201802
  2. PASIREOTIDE [Suspect]
     Active Substance: PASIREOTIDE
     Dosage: 40 MILLIGRAM, EVERY 28 DAYS
     Route: 030
     Dates: end: 202401
  3. CABERGOLINE [Suspect]
     Active Substance: CABERGOLINE
     Indication: Acromegaly
     Dosage: 4 MILLIGRAM, QW
     Route: 048
     Dates: start: 201704
  4. CABERGOLINE [Suspect]
     Active Substance: CABERGOLINE
     Dosage: 4 MILLIGRAM, QW
     Route: 048
     Dates: start: 202305, end: 202401
  5. PEGVISOMANT [Suspect]
     Active Substance: PEGVISOMANT
     Indication: Acromegaly
     Dosage: 10 MILLIGRAM, QD
     Route: 058
     Dates: start: 201906
  6. PEGVISOMANT [Suspect]
     Active Substance: PEGVISOMANT
     Dosage: 20 MILLIGRAM, QD
     Route: 058
     Dates: start: 202305, end: 202401
  7. BEVACIZUMAB [Suspect]
     Active Substance: BEVACIZUMAB
     Indication: Acromegaly
     Dosage: UNK
     Dates: start: 202305, end: 202401

REACTIONS (2)
  - Death [Fatal]
  - Off label use [Recovered/Resolved]

NARRATIVE: CASE EVENT DATE: 20180201
